FAERS Safety Report 8917462 (Version 3)
Quarter: 2012Q4

REPORT INFORMATION
  Report Type: Report from Study
  Country: GB (occurrence: GB)
  Receive Date: 20121120
  Receipt Date: 20121221
  Transmission Date: 20130627
  Serious: Yes (Hospitalization)
  Sender: FDA-Public Use
  Company Number: GB-PFIZER INC-2012285222

PATIENT
  Age: 71 Year
  Sex: Male
  Weight: 68.5 kg

DRUGS (7)
  1. AXITINIB [Suspect]
     Indication: ANGIOSARCOMA
     Dosage: 3 mg (frequency unspecified)
     Dates: start: 20120919, end: 20121115
  2. ALLOPURINOL [Concomitant]
     Indication: GOUT
     Dosage: 100 mg once daily
     Route: 048
     Dates: start: 2002
  3. SIMVASTATIN [Concomitant]
     Indication: HYPERCHOLESTEROLAEMIA
     Dosage: 40 mg, once daily
     Route: 048
     Dates: start: 2006
  4. RAMIPRIL [Concomitant]
     Indication: HYPERTENSION
     Dosage: 1.25 mg, once daily
     Route: 048
     Dates: start: 20121009
  5. OXYCONTIN [Concomitant]
     Indication: PAIN
     Dosage: 20 mg, twice daily
     Route: 048
     Dates: start: 20121013
  6. OXYNORM [Concomitant]
     Indication: PAIN
     Dosage: 5 mg, as needed
     Route: 048
     Dates: start: 20121014
  7. MOVICOL [Concomitant]
     Indication: CONSTIPATION
     Dosage: 1-2 sachets, twice daily
     Route: 048
     Dates: start: 20121005

REACTIONS (1)
  - Pneumothorax [Recovered/Resolved with Sequelae]
